FAERS Safety Report 18715892 (Version 1)
Quarter: 2021Q1

REPORT INFORMATION
  Report Type: Spontaneous
  Country: DE (occurrence: DE)
  Receive Date: 20210108
  Receipt Date: 20210108
  Transmission Date: 20210419
  Serious: Yes (Hospitalization)
  Sender: FDA-Public Use
  Company Number: DE-IGSA-BIG0012623

PATIENT
  Age: 48 Year
  Sex: Female
  Weight: 70 kg

DRUGS (4)
  1. PROLASTIN [Suspect]
     Active Substance: .ALPHA.1-PROTEINASE INHIBITOR HUMAN
     Dosage: 8000 MILLIGRAM, Q.WK.
     Route: 042
     Dates: start: 202009, end: 202010
  2. PROLASTIN [Suspect]
     Active Substance: .ALPHA.1-PROTEINASE INHIBITOR HUMAN
     Dosage: 5000 MILLIGRAM
     Route: 042
     Dates: start: 20210104, end: 20210104
  3. PROLASTIN [Suspect]
     Active Substance: .ALPHA.1-PROTEINASE INHIBITOR HUMAN
     Indication: ALPHA-1 ANTITRYPSIN DEFICIENCY
     Dosage: UNK
     Route: 042
     Dates: start: 2014
  4. PROLASTIN [Suspect]
     Active Substance: .ALPHA.1-PROTEINASE INHIBITOR HUMAN
     Dosage: UNK UNK, Q.WK.
     Route: 042
     Dates: start: 202011, end: 202012

REACTIONS (13)
  - Headache [Recovering/Resolving]
  - Disturbance in attention [Not Recovered/Not Resolved]
  - Aphasia [Not Recovered/Not Resolved]
  - Alopecia [Not Recovered/Not Resolved]
  - Dyspnoea [Unknown]
  - Tachycardia [Unknown]
  - Cough [Unknown]
  - Visual impairment [Not Recovered/Not Resolved]
  - Myalgia [Not Recovered/Not Resolved]
  - Arthralgia [Not Recovered/Not Resolved]
  - Dizziness [Recovering/Resolving]
  - Discomfort [Unknown]
  - Chest discomfort [Unknown]

NARRATIVE: CASE EVENT DATE: 20200505
